FAERS Safety Report 9694579 (Version 1)
Quarter: 2013Q4

REPORT INFORMATION
  Report Type: Spontaneous
  Country: US (occurrence: US)
  Receive Date: 20131118
  Receipt Date: 20131118
  Transmission Date: 20140711
  Serious: Yes (Other)
  Sender: FDA-Public Use
  Company Number: US-JNJFOC-20131104369

PATIENT
  Age: 65 Year
  Sex: Female
  Weight: 49.9 kg

DRUGS (6)
  1. TYLENOL UNSPECIFIED [Suspect]
     Route: 065
  2. TYLENOL UNSPECIFIED [Suspect]
     Indication: INFUSION RELATED REACTION
     Route: 065
     Dates: start: 20131106
  3. REMICADE [Concomitant]
     Indication: RHEUMATOID ARTHRITIS
     Route: 042
     Dates: start: 20131106
  4. REMICADE [Concomitant]
     Indication: RHEUMATOID ARTHRITIS
     Route: 042
  5. BENADRYL [Concomitant]
     Indication: INFUSION RELATED REACTION
     Route: 042
     Dates: start: 20131106
  6. SOLU-MEDROL [Concomitant]
     Indication: INFUSION RELATED REACTION
     Route: 065
     Dates: start: 20131106

REACTIONS (1)
  - Drug ineffective for unapproved indication [Unknown]
